FAERS Safety Report 5265327-2 (Version None)
Quarter: 2007Q1

REPORT INFORMATION
  Report Type: 
  Country: None (occurrence: None)
  Receive Date: 20070314
  Receipt Date: 20070305
  Transmission Date: 20070707
  Serious: Yes (Hospitalization, Other)
  Sender: FDA-Public Use
  Company Number: GB-PFIZER INC-2007017358

PATIENT
  Sex: Female

DRUGS (3)
  1. FRAGMIN [Suspect]
     Indication: DEEP VEIN THROMBOSIS
     Route: 058
  2. FRAGMIN [Suspect]
     Indication: PULMONARY EMBOLISM
  3. CODEINE PHOSPHATE AND ACETAMINOPHEN [Suspect]
     Indication: BACK PAIN

REACTIONS (6)
  - BACK PAIN [None]
  - DIZZINESS [None]
  - FEELING ABNORMAL [None]
  - MALAISE [None]
  - POLYP [None]
  - THROMBOSIS [None]
